FAERS Safety Report 7313934-5 (Version None)
Quarter: 2011Q1

REPORT INFORMATION
  Report Type: 
  Country: None (occurrence: None)
  Receive Date: 20110225
  Receipt Date: 20110210
  Transmission Date: 20110831
  Serious: Yes (Other)
  Sender: FDA-Public Use
  Company Number: PHHY2011CA11421

PATIENT
  Sex: Male

DRUGS (1)
  1. SANDOSTATIN LAR [Suspect]
     Indication: PANCREATIC NEUROENDOCRINE TUMOUR METASTATIC
     Dosage: 30 MG, EVERY 4 WEEKS
     Route: 030
     Dates: start: 20100602

REACTIONS (5)
  - MOVEMENT DISORDER [None]
  - PLATELET COUNT DECREASED [None]
  - MUSCULOSKELETAL STIFFNESS [None]
  - WEIGHT DECREASED [None]
  - HEAD DISCOMFORT [None]
